FAERS Safety Report 6094274-1 (Version None)
Quarter: 2009Q1

REPORT INFORMATION
  Report Type: 
  Country: None (occurrence: None)
  Receive Date: 20090225
  Receipt Date: 20090225
  Transmission Date: 20090719
  Serious: Yes (Other)
  Sender: FDA-Public Use
  Company Number: None

PATIENT
  Age: 24 Year
  Sex: Female
  Weight: 33.64 kg

DRUGS (1)
  1. NONOXYNOL-9 [Suspect]
     Indication: CONTRACEPTION
     Dates: start: 20090224, end: 20090224

REACTIONS (5)
  - HYPERSENSITIVITY [None]
  - MEDICAL DEVICE COMPLICATION [None]
  - VAGINAL HAEMORRHAGE [None]
  - VAGINAL SWELLING [None]
  - VULVOVAGINAL PAIN [None]
